FAERS Safety Report 18193777 (Version 1)
Quarter: 2020Q3

REPORT INFORMATION
  Report Type: Spontaneous
  Country: US (occurrence: US)
  Receive Date: 20200825
  Receipt Date: 20200825
  Transmission Date: 20201103
  Serious: No
  Sender: FDA-Public Use
  Company Number: US-ROCHE-2359057

PATIENT
  Sex: Male

DRUGS (5)
  1. ASPIRIN. [Concomitant]
     Active Substance: ASPIRIN
     Route: 048
  2. LOSARTAN. [Concomitant]
     Active Substance: LOSARTAN
  3. DICLOFENAC [Concomitant]
     Active Substance: DICLOFENAC
  4. VITAMIN D3 [Concomitant]
     Active Substance: CHOLECALCIFEROL
     Dosage: 500 UNIT
  5. PEGASYS [Suspect]
     Active Substance: PEGINTERFERON ALFA-2A
     Indication: BLOOD DISORDER
     Dosage: INJECT 45 MCG (0.25 ML)
     Route: 058

REACTIONS (2)
  - Product dose omission issue [Unknown]
  - Memory impairment [Unknown]
